FAERS Safety Report 22336746 (Version 1)
Quarter: 2023Q2

REPORT INFORMATION
  Report Type: Spontaneous
  Country: US (occurrence: None)
  Receive Date: 20230518
  Receipt Date: 20230518
  Transmission Date: 20230722
  Serious: No
  Sender: FDA-Public Use
  Company Number: US-ROCHE-3200954

PATIENT
  Sex: Female

DRUGS (11)
  1. ACTEMRA [Suspect]
     Active Substance: TOCILIZUMAB
     Indication: Rheumatoid arthritis
     Dosage: ACTEMRA ACTPEN 162MG 0.9ML
     Route: 058
     Dates: start: 202203
  2. ACTEMRA [Suspect]
     Active Substance: TOCILIZUMAB
  3. AMITRIPTYLINE [Concomitant]
     Active Substance: AMITRIPTYLINE
  4. AMLODIPINE [Concomitant]
     Active Substance: AMLODIPINE BESYLATE
  5. BYETTA [Concomitant]
     Active Substance: EXENATIDE
     Dosage: 10 MC SOP 10 MCG/0
  6. GABAPENTIN [Concomitant]
     Active Substance: GABAPENTIN
  7. HUMULIN R [Concomitant]
     Active Substance: INSULIN HUMAN
     Dosage: HUMULIN R SOL 100 UNIT/ML
  8. METFORMIN HYDROCHLORIDE [Concomitant]
     Active Substance: METFORMIN HYDROCHLORIDE
  9. METOPROLOL [Concomitant]
     Active Substance: METOPROLOL
  10. PANTOPRAZOLE [Concomitant]
     Active Substance: PANTOPRAZOLE
  11. ULTRACET [Concomitant]
     Active Substance: ACETAMINOPHEN\TRAMADOL HYDROCHLORIDE
     Dosage: TAB 37.5 TO 325MG

REACTIONS (1)
  - Pain [Unknown]
